FAERS Safety Report 7053858-4 (Version None)
Quarter: 2010Q4

REPORT INFORMATION
  Report Type: 
  Country: None (occurrence: None)
  Receive Date: 20101020
  Receipt Date: 20101014
  Transmission Date: 20110411
  Serious: Yes (Hospitalization, Other)
  Sender: FDA-Public Use
  Company Number: CN-GENZYME-CERZ-1001507

PATIENT

DRUGS (2)
  1. CEREZYME [Suspect]
     Indication: GAUCHER'S DISEASE
     Dosage: 34 U/KG, Q2W
     Route: 042
     Dates: start: 20100401
  2. CEREZYME [Suspect]
     Dosage: 33 U, Q2W
     Route: 042
     Dates: start: 20000301, end: 20100401

REACTIONS (3)
  - FALL [None]
  - OSTEONECROSIS [None]
  - PAIN IN EXTREMITY [None]
